FAERS Safety Report 22126355 (Version 1)
Quarter: 2023Q1

REPORT INFORMATION
  Report Type: Spontaneous
  Country: US (occurrence: US)
  Receive Date: 20230322
  Receipt Date: 20230322
  Transmission Date: 20230418
  Serious: No
  Sender: FDA-Public Use
  Company Number: US-ALLERGAN-2301946US

PATIENT
  Age: 61 Year
  Sex: Female

DRUGS (1)
  1. LATISSE [Suspect]
     Active Substance: BIMATOPROST
     Indication: Growth of eyelashes
     Dosage: 2 GTT, QD
     Route: 003
     Dates: start: 202301, end: 202301

REACTIONS (4)
  - Eyelid skin dryness [Recovered/Resolved]
  - Eye pain [Recovered/Resolved]
  - Ocular hyperaemia [Recovered/Resolved]
  - Erythema of eyelid [Recovered/Resolved]

NARRATIVE: CASE EVENT DATE: 20230101
